FAERS Safety Report 11730552 (Version 1)
Quarter: 2015Q4

REPORT INFORMATION
  Report Type: Spontaneous
  Country: US (occurrence: US)
  Receive Date: 20151110
  Receipt Date: 20151110
  Transmission Date: 20160304
  Serious: No
  Sender: FDA-Public Use
  Company Number: US-ELI_LILLY_AND_COMPANY-US201202001572

PATIENT
  Age: 87 Year
  Sex: Female
  Weight: 44.5 kg

DRUGS (1)
  1. FORTEO [Suspect]
     Active Substance: TERIPARATIDE
     Indication: OSTEOPOROSIS
     Dosage: 20 UG, QD
     Route: 065
     Dates: start: 20111102

REACTIONS (6)
  - Urinary incontinence [Unknown]
  - Dizziness [Recovered/Resolved]
  - Balance disorder [Unknown]
  - Drug dose omission [Unknown]
  - Asthenia [Unknown]
  - Faecal incontinence [Unknown]

NARRATIVE: CASE EVENT DATE: 201112
